FAERS Safety Report 16575414 (Version 1)
Quarter: 2019Q3

REPORT INFORMATION
  Report Type: Report from Study
  Country: None (occurrence: CO)
  Receive Date: 20190716
  Receipt Date: 20190716
  Transmission Date: 20191004
  Serious: Yes (Death)
  Sender: FDA-Public Use
  Company Number: CO-ABBVIE-19K-036-2854266-00

PATIENT
  Age: 73 Year
  Sex: Male

DRUGS (1)
  1. ZEMPLAR [Suspect]
     Active Substance: PARICALCITOL
     Indication: HYPERPARATHYROIDISM SECONDARY
     Route: 042
     Dates: start: 20171114, end: 20190509

REACTIONS (2)
  - Cardiac arrest [Fatal]
  - Urosepsis [Fatal]

NARRATIVE: CASE EVENT DATE: 20190617
